FAERS Safety Report 22928413 (Version 6)
Quarter: 2025Q4

REPORT INFORMATION
  Report Type: Spontaneous
  Country: US (occurrence: US)
  Receive Date: 20230911
  Receipt Date: 20251107
  Transmission Date: 20260117
  Serious: Yes (Hospitalization)
  Sender: NOVARTIS
  Company Number: US-002147023-NVSC2023US194316

PATIENT
  Age: 77 Year
  Sex: Female

DRUGS (4)
  1. MEKINIST [Suspect]
     Active Substance: TRAMETINIB DIMETHYL SULFOXIDE
     Indication: Malignant melanoma
     Dosage: 2 MG, QD (1 TIME FOR A DAY FOR 1 WEEK, THEN 1 WEEK OFF))
     Route: 048
     Dates: start: 201611
  2. MEKINIST [Suspect]
     Active Substance: TRAMETINIB DIMETHYL SULFOXIDE
     Dosage: 1 MG TAKE 2 TABLETS BY MOUTH I TIME A DAY FOR ONE WEEK, THEN TAKE ONE WEEK OFF-(
     Route: 048
     Dates: start: 201703
  3. TAFINLAR [Suspect]
     Active Substance: DABRAFENIB MESYLATE
     Indication: Malignant melanoma
     Dosage: 75 MG (EVERY 12 HOURS FOR 1 WEEK ON AND THEN 1 WEEK OFF)
     Route: 048
     Dates: start: 201611
  4. TAFINLAR [Suspect]
     Active Substance: DABRAFENIB MESYLATE
     Indication: Metastasis
     Dosage: 50 MG (- TAKE 1 CAPSULE BY MOUTH EVERY 12 HOURS FOR 1 WEEK ON THEN 1 WEEK OFF)
     Route: 048
     Dates: start: 201703

REACTIONS (5)
  - Gastrointestinal haemorrhage [Recovered/Resolved]
  - Influenza like illness [Unknown]
  - Chills [Recovered/Resolved]
  - Asthenia [Recovered/Resolved]
  - Fatigue [Unknown]

NARRATIVE: CASE EVENT DATE: 20250903
